FAERS Safety Report 5494179-0 (Version None)
Quarter: 2007Q4

REPORT INFORMATION
  Report Type: 
  Country: None (occurrence: None)
  Receive Date: 20071024
  Receipt Date: 20071019
  Transmission Date: 20080405
  Serious: Yes (Life-Threatening)
  Sender: FDA-Public Use
  Company Number: PHMT2007CA02094

PATIENT
  Sex: Male

DRUGS (1)
  1. CLOZARIL [Suspect]
     Route: 048

REACTIONS (4)
  - BLOOD PRESSURE DECREASED [None]
  - DYSSTASIA [None]
  - FEELING ABNORMAL [None]
  - HEART RATE INCREASED [None]
